FAERS Safety Report 7716530-0 (Version None)
Quarter: 2011Q3

REPORT INFORMATION
  Report Type: 
  Country: None (occurrence: None)
  Receive Date: 20110829
  Receipt Date: 20110624
  Transmission Date: 20111222
  Serious: No
  Sender: FDA-Public Use
  Company Number: US-ABBOTT-11P-163-0834552-00

PATIENT
  Age: 45 Year
  Sex: Male
  Weight: 108.96 kg

DRUGS (1)
  1. ANDROGEL [Suspect]
     Indication: BLOOD TESTOSTERONE DECREASED
     Dosage: 4 PUMPS PER DAY
     Dates: start: 20110620

REACTIONS (3)
  - HEADACHE [None]
  - INCORRECT ROUTE OF DRUG ADMINISTRATION [None]
  - NAUSEA [None]
